FAERS Safety Report 21678932 (Version 1)
Quarter: 2022Q4

REPORT INFORMATION
  Report Type: Spontaneous
  Country: JP (occurrence: JP)
  Receive Date: 20221204
  Receipt Date: 20221204
  Transmission Date: 20230113
  Serious: Yes (Other)
  Sender: FDA-Public Use
  Company Number: JP-002147023-NVSJ2022JP275402

PATIENT

DRUGS (1)
  1. AMLODIPINE\VALSARTAN [Suspect]
     Active Substance: AMLODIPINE\VALSARTAN
     Indication: Blood pressure increased
     Dosage: UNK, BID, IN MORNING AND EVENING
     Route: 048

REACTIONS (2)
  - Hypokalaemia [Unknown]
  - Product use issue [Unknown]
